FAERS Safety Report 19665859 (Version 1)
Quarter: 2021Q3

REPORT INFORMATION
  Report Type: Report from Study
  Country: PT (occurrence: PT)
  Receive Date: 20210806
  Receipt Date: 20210806
  Transmission Date: 20211014
  Serious: Yes (Other)
  Sender: FDA-Public Use
  Company Number: PT-CELLTRION INC.-2021PT010182

PATIENT

DRUGS (3)
  1. POLATUZUMAB VEDOTIN. [Suspect]
     Active Substance: POLATUZUMAB VEDOTIN
     Indication: PRODUCT USED FOR UNKNOWN INDICATION
     Route: 065
  2. BENDAMUSTINE [Suspect]
     Active Substance: BENDAMUSTINE
     Indication: PRODUCT USED FOR UNKNOWN INDICATION
  3. RITUXIMAB (UNKNOWN) [Suspect]
     Active Substance: RITUXIMAB
     Indication: PRODUCT USED FOR UNKNOWN INDICATION
     Route: 065

REACTIONS (15)
  - Neutropenia [Unknown]
  - Hypophosphataemia [Unknown]
  - Depression [Unknown]
  - Dyspepsia [Unknown]
  - Transaminases increased [Unknown]
  - Hypomagnesaemia [Unknown]
  - Fatigue [Unknown]
  - Thrombocytopenia [Unknown]
  - Anaemia [Unknown]
  - Renal failure [Unknown]
  - Leukopenia [Unknown]
  - Rash maculo-papular [Unknown]
  - Ocular hyperaemia [Unknown]
  - Tachycardia [Unknown]
  - Hypokalaemia [Unknown]
